FAERS Safety Report 13634433 (Version 1)
Quarter: 2017Q2

REPORT INFORMATION
  Report Type: Spontaneous
  Country: US (occurrence: US)
  Receive Date: 20170531
  Receipt Date: 20170531
  Transmission Date: 20170830
  Serious: No
  Sender: FDA-Public Use
  Company Number: US-ASTELLAS-1629372

PATIENT
  Sex: Female

DRUGS (1)
  1. TARCEVA [Suspect]
     Active Substance: ERLOTINIB HYDROCHLORIDE
     Indication: LUNG NEOPLASM MALIGNANT
     Route: 048
     Dates: start: 20150812

REACTIONS (8)
  - Anal pruritus [Unknown]
  - Vulvovaginal discomfort [Unknown]
  - Diarrhoea [Unknown]
  - Oral discomfort [Unknown]
  - Alopecia [Unknown]
  - Vulvovaginal dryness [Unknown]
  - Dry skin [Unknown]
  - Tongue discomfort [Unknown]
